FAERS Safety Report 4443878-8 (Version None)
Quarter: 2004Q3

REPORT INFORMATION
  Report Type: 
  Country: None (occurrence: None)
  Receive Date: 20040908
  Receipt Date: 20040329
  Transmission Date: 20050211
  Serious: Yes (Other)
  Sender: FDA-Public Use
  Company Number: PHBS2004ZA04266

PATIENT
  Age: 55 Year
  Sex: Female

DRUGS (2)
  1. ZELNORM [Suspect]
     Indication: IRRITABLE BOWEL SYNDROME
     Dosage: 6 MG, UNK
     Route: 048
     Dates: start: 20030807, end: 20030818
  2. PREMARIN [Concomitant]
     Dates: start: 20011206

REACTIONS (14)
  - DERMATITIS [None]
  - DERMATITIS EXFOLIATIVE [None]
  - DIFFICULTY IN WALKING [None]
  - DRY SKIN [None]
  - ECZEMA [None]
  - EMOTIONAL DISTRESS [None]
  - ERYTHEMA [None]
  - PRURITUS [None]
  - PSORIASIS [None]
  - RASH GENERALISED [None]
  - SKIN ATROPHY [None]
  - SKIN INFLAMMATION [None]
  - STEROID WITHDRAWAL SYNDROME [None]
  - WEIGHT DECREASED [None]
